FAERS Safety Report 4851096-4 (Version None)
Quarter: 2005Q4

REPORT INFORMATION
  Report Type: 
  Country: None (occurrence: None)
  Receive Date: 20051208
  Receipt Date: 20051129
  Transmission Date: 20060501
  Serious: Yes (Life-Threatening)
  Sender: FDA-Public Use
  Company Number: 2005-07-1037

PATIENT
  Age: 60 Year
  Sex: Male
  Weight: 74.8435 kg

DRUGS (3)
  1. INTERFERON ALFA-2B MULTIDOSE PEN [Suspect]
     Indication: HEPATITIS C
     Dosage: QOD SUBCUTANEOUS
     Route: 058
     Dates: start: 20000101, end: 20010201
  2. RIBAVIRIN [Suspect]
     Indication: HEPATITIS C
     Dosage: QD ORAL
     Route: 048
     Dates: start: 20000101, end: 20010201
  3. CONTAC-C [Concomitant]

REACTIONS (15)
  - ARTHRITIS [None]
  - ARTHROPOD STING [None]
  - CONDITION AGGRAVATED [None]
  - DEPRESSION [None]
  - DIARRHOEA [None]
  - DRUG HYPERSENSITIVITY [None]
  - DYSLALIA [None]
  - DYSPEPSIA [None]
  - HEADACHE [None]
  - HIATUS HERNIA [None]
  - HYPERSENSITIVITY [None]
  - MENTAL DISORDER [None]
  - PERSONALITY CHANGE [None]
  - RASH [None]
  - SOCIAL AVOIDANT BEHAVIOUR [None]
